FAERS Safety Report 25193539 (Version 2)
Quarter: 2025Q3

REPORT INFORMATION
  Report Type: Spontaneous
  Country: CN (occurrence: CN)
  Receive Date: 20250414
  Receipt Date: 20250810
  Transmission Date: 20251020
  Serious: Yes (Hospitalization)
  Sender: ALEXION PHARMACEUTICALS
  Company Number: CN-ASTRAZENECA-202504CHN005304CN

PATIENT
  Age: 50 Year
  Sex: Male
  Weight: 65 kg

DRUGS (1)
  1. DAPAGLIFLOZIN [Suspect]
     Active Substance: DAPAGLIFLOZIN
     Indication: Blood glucose increased
     Dosage: 10 MILLIGRAM, QD
     Dates: start: 20250329, end: 20250403

REACTIONS (10)
  - Renal failure [Recovering/Resolving]
  - Nausea [Recovering/Resolving]
  - Decreased appetite [Recovering/Resolving]
  - Hypophagia [Recovering/Resolving]
  - Asthenia [Recovering/Resolving]
  - Thirst [Recovering/Resolving]
  - Polydipsia [Recovering/Resolving]
  - Gastrooesophageal reflux disease [Recovering/Resolving]
  - Dyspepsia [Recovering/Resolving]
  - Peripheral swelling [Recovering/Resolving]

NARRATIVE: CASE EVENT DATE: 20250403
